FAERS Safety Report 8359663-0 (Version None)
Quarter: 2012Q2

REPORT INFORMATION
  Report Type: 
  Country: None (occurrence: None)
  Receive Date: 20120514
  Receipt Date: 20120514
  Transmission Date: 20120825
  Serious: No
  Sender: FDA-Public Use
  Company Number: None

PATIENT
  Age: 74 Year
  Sex: Male
  Weight: 89.3 kg

DRUGS (1)
  1. FORMOTEROL/MOMETASONE [Suspect]
     Indication: CHRONIC OBSTRUCTIVE PULMONARY DISEASE
     Dosage: MCG BID INHALE
     Route: 055
     Dates: start: 20110202, end: 20110620

REACTIONS (2)
  - WHEEZING [None]
  - COUGH [None]
